FAERS Safety Report 9737923 (Version 2)
Quarter: 2013Q4

REPORT INFORMATION
  Report Type: Spontaneous
  Country: US (occurrence: US)
  Receive Date: 20131208
  Receipt Date: 20131208
  Transmission Date: 20140711
  Serious: No
  Sender: FDA-Public Use
  Company Number: -SAAVPROD-RENA-1001932

PATIENT
  Age: 67 Year
  Sex: Male
  Weight: 105 kg

DRUGS (16)
  1. SEVELAMER CARBONATE [Suspect]
     Indication: RENAL FAILURE CHRONIC
     Dosage: 9 DF, QD (03 PER MEAL)
     Route: 065
     Dates: start: 20120423, end: 20130731
  2. ACETYLSALICYLIC ACID [Concomitant]
     Indication: PRODUCT USED FOR UNKNOWN INDICATION
     Dosage: 81 MG, QD
     Route: 048
     Dates: start: 20130703
  3. ALLOPURINOL [Concomitant]
     Indication: PRODUCT USED FOR UNKNOWN INDICATION
     Dosage: 300 MG, QD
     Route: 048
     Dates: start: 20130424
  4. DILTIAZEM [Concomitant]
     Indication: PRODUCT USED FOR UNKNOWN INDICATION
     Dosage: 240 MG, QD
     Route: 048
     Dates: start: 20130424
  5. EPOETIN ALFA [Concomitant]
     Indication: PRODUCT USED FOR UNKNOWN INDICATION
     Dosage: 15000 U/ML, 3X/W DOSE:15000 INTERNATIONAL UNIT(S)/MILLILITRE
     Route: 042
     Dates: start: 20130409
  6. CYCLOBENZAPRINE HYDROCHLORIDE [Concomitant]
     Indication: PRODUCT USED FOR UNKNOWN INDICATION
     Dosage: 10 MG, QD
     Route: 048
     Dates: start: 20121210
  7. HEPARIN SODIUM [Concomitant]
     Indication: PRODUCT USED FOR UNKNOWN INDICATION
     Dosage: 4000 ML, UNK (1000 U/HOURLY)
     Route: 042
     Dates: start: 20120319
  8. HYROCODONE W ACETAMINOPHEN [Concomitant]
     Indication: PRODUCT USED FOR UNKNOWN INDICATION
     Dosage: 10 MG-500 MG, Q6H
     Route: 048
     Dates: start: 20120322
  9. UNKNOWDRUG [Concomitant]
     Indication: PRODUCT USED FOR UNKNOWN INDICATION
     Dosage: 1 MG, QD
     Route: 048
     Dates: start: 20130219
  10. CARBOHYDRATES NOS, FATS NOS, MINERALS NOS, PROTEIN, VITAMINS NOS [Concomitant]
     Indication: PRODUCT USED FOR UNKNOWN INDICATION
     Dosage: 1 ML, QD
     Route: 048
     Dates: start: 20120423
  11. PANTOPRAZOLE SODIUM [Concomitant]
     Indication: PRODUCT USED FOR UNKNOWN INDICATION
     Dosage: 40 MG, QD
     Route: 048
     Dates: start: 20120322
  12. CALCIUM ACETATE [Concomitant]
     Indication: PRODUCT USED FOR UNKNOWN INDICATION
     Dosage: 3 DF, TID
     Route: 048
     Dates: start: 20130802
  13. CINACALCET HYDROCHLORIDE [Concomitant]
     Indication: PRODUCT USED FOR UNKNOWN INDICATION
     Dosage: 30 MG, QD
     Route: 048
     Dates: start: 20130415
  14. PARACETAMOL [Concomitant]
     Indication: PRODUCT USED FOR UNKNOWN INDICATION
     Dosage: 650 MG, Q4HR
     Route: 048
     Dates: start: 20121026
  15. PARICALCITOL [Concomitant]
     Indication: PRODUCT USED FOR UNKNOWN INDICATION
     Dosage: 3 MCG/ML, 3X/W DOSE:3 MICROGRAM(S)/MILLILITRE
     Route: 042
     Dates: start: 20130515
  16. CETIRIZINE HYDROCHLORIDE [Concomitant]
     Indication: PRODUCT USED FOR UNKNOWN INDICATION
     Dosage: 10 MG, QD
     Route: 048
     Dates: start: 20120706

REACTIONS (1)
  - Gastrointestinal haemorrhage [Not Recovered/Not Resolved]
